FAERS Safety Report 10916689 (Version 1)
Quarter: 2015Q1

REPORT INFORMATION
  Report Type: Spontaneous
  Country: US (occurrence: None)
  Receive Date: 20150312
  Receipt Date: 20150312
  Transmission Date: 20150721
  Serious: Yes (Other)
  Sender: FDA-Public Use
  Company Number: None

PATIENT
  Age: 49 Year
  Sex: Female
  Weight: 61 kg

DRUGS (11)
  1. DEXAMETHASONE. [Concomitant]
     Active Substance: DEXAMETHASONE
  2. VANCOMYCIN [Concomitant]
     Active Substance: VANCOMYCIN
  3. FENTANYL. [Concomitant]
     Active Substance: FENTANYL
  4. VIMPAT [Suspect]
     Active Substance: LACOSAMIDE
     Indication: SEIZURE
     Dates: start: 20150206, end: 20150303
  5. ACETAMINOPHEN. [Concomitant]
     Active Substance: ACETAMINOPHEN
  6. CEFEPIME [Concomitant]
     Active Substance: CEFEPIME\CEFEPIME HYDROCHLORIDE
  7. POTASSIUM CHLORIDE. [Concomitant]
     Active Substance: POTASSIUM CHLORIDE
  8. PROPOFOL. [Concomitant]
     Active Substance: PROPOFOL
  9. INSULIN [Concomitant]
     Active Substance: INSULIN NOS
  10. MANNITOL. [Concomitant]
     Active Substance: MANNITOL
  11. LEVOFLOXACIN. [Concomitant]
     Active Substance: LEVOFLOXACIN

REACTIONS (5)
  - Brain mass [None]
  - Mental status changes [None]
  - Electrocardiogram QRS complex shortened [None]
  - Seizure [None]
  - Bradycardia [None]

NARRATIVE: CASE EVENT DATE: 20150303
